FAERS Safety Report 9691767 (Version 1)
Quarter: 2013Q4

REPORT INFORMATION
  Report Type: Report from Study
  Country: US (occurrence: US)
  Receive Date: 20131115
  Receipt Date: 20131115
  Transmission Date: 20140711
  Serious: No
  Sender: FDA-Public Use
  Company Number: US-009507513-1311USA002640

PATIENT
  Sex: 0

DRUGS (1)
  1. IMPLANON [Suspect]
     Dosage: UNK
     Dates: start: 20110824, end: 20131106

REACTIONS (3)
  - Device difficult to use [Recovered/Resolved]
  - Menstruation irregular [Unknown]
  - Implant site fibrosis [Unknown]
